FAERS Safety Report 5373391-5 (Version None)
Quarter: 2007Q2

REPORT INFORMATION
  Report Type: 
  Country: None (occurrence: None)
  Receive Date: 20070626
  Receipt Date: 20070626
  Transmission Date: 20071010
  Serious: Yes (Hospitalization)
  Sender: FDA-Public Use
  Company Number: None

PATIENT
  Age: 49 Year
  Sex: Male
  Weight: 102 kg

DRUGS (1)
  1. DEPAKOTE [Suspect]
     Indication: SCHIZOAFFECTIVE DISORDER
     Dosage: 1250 MG  BID  PO
     Route: 048

REACTIONS (7)
  - ABNORMAL BEHAVIOUR [None]
  - AGGRESSION [None]
  - AMMONIA INCREASED [None]
  - LETHARGY [None]
  - MENTAL STATUS CHANGES [None]
  - SOMNOLENCE [None]
  - TREMOR [None]
